FAERS Safety Report 7586739-8 (Version None)
Quarter: 2011Q2

REPORT INFORMATION
  Report Type: 
  Country: None (occurrence: None)
  Receive Date: 20110603
  Receipt Date: 20110216
  Transmission Date: 20111010
  Serious: Yes (Other)
  Sender: FDA-Public Use
  Company Number: 2011SP007423

PATIENT
  Sex: Male

DRUGS (3)
  1. HALDOL [Concomitant]
  2. SAPHRIS [Suspect]
     Indication: SCHIZOPHRENIA
     Dosage: 10 MG:BID;SL
     Route: 060
  3. CLOZAPINE [Concomitant]

REACTIONS (3)
  - PSYCHOTIC DISORDER [None]
  - MENTAL DISORDER [None]
  - INAPPROPRIATE SCHEDULE OF DRUG ADMINISTRATION [None]
